FAERS Safety Report 24547552 (Version 2)
Quarter: 2024Q4

REPORT INFORMATION
  Report Type: Spontaneous
  Country: US (occurrence: US)
  Receive Date: 20241025
  Receipt Date: 20241217
  Transmission Date: 20250115
  Serious: No
  Sender: ALEXION PHARMACEUTICALS
  Company Number: US-AstraZeneca-CH-00727921AP

PATIENT
  Age: 78 Year

DRUGS (4)
  1. WAINUA [Suspect]
     Active Substance: EPLONTERSEN
     Dosage: 45 MILLIGRAM
     Route: 065
  2. WAINUA [Suspect]
     Active Substance: EPLONTERSEN
     Dosage: 45 MILLIGRAM
     Route: 065
  3. WAINUA [Suspect]
     Active Substance: EPLONTERSEN
     Dosage: 45 MILLIGRAM
     Route: 065
  4. WAINUA [Suspect]
     Active Substance: EPLONTERSEN
     Dosage: 45 MILLIGRAM
     Route: 065

REACTIONS (2)
  - Device breakage [Recovered/Resolved]
  - Product dose omission issue [Unknown]
